FAERS Safety Report 22644509 (Version 3)
Quarter: 2023Q4

REPORT INFORMATION
  Report Type: Report from Study
  Country: US (occurrence: US)
  Receive Date: 20230627
  Receipt Date: 20231007
  Transmission Date: 20240110
  Serious: Yes (Other)
  Sender: FDA-Public Use
  Company Number: US-002147023-NVSC2023US144382

PATIENT
  Sex: Male

DRUGS (1)
  1. ENTRESTO [Suspect]
     Active Substance: SACUBITRIL\VALSARTAN
     Indication: Product used for unknown indication
     Dosage: 24/26 MG (1 DOSAGE FORM, BID)
     Route: 048

REACTIONS (7)
  - Left ventricular failure [Unknown]
  - Heart rate increased [Unknown]
  - Anxiety [Unknown]
  - Viral infection [Unknown]
  - Amnesia [Unknown]
  - Malaise [Unknown]
  - Fatigue [Unknown]
